FAERS Safety Report 12190781 (Version 1)
Quarter: 2016Q1

REPORT INFORMATION
  Report Type: Spontaneous
  Country: US (occurrence: None)
  Receive Date: 20160317
  Receipt Date: 20160317
  Transmission Date: 20160526
  Serious: Yes (Hospitalization)
  Sender: FDA-Public Use
  Company Number: None

PATIENT
  Age: 54 Year
  Sex: Male
  Weight: 129.6 kg

DRUGS (1)
  1. NAPROXEN. [Suspect]
     Active Substance: NAPROXEN
     Indication: PAIN
     Route: 048
     Dates: start: 20130827, end: 20131021

REACTIONS (4)
  - Anastomotic ulcer [None]
  - Upper gastrointestinal haemorrhage [None]
  - Haemoglobin decreased [None]
  - Gastric haemorrhage [None]

NARRATIVE: CASE EVENT DATE: 20131021
